FAERS Safety Report 5122044-7 (Version None)
Quarter: 2006Q4

REPORT INFORMATION
  Report Type: 
  Country: None (occurrence: None)
  Receive Date: 20061003
  Receipt Date: 20060825
  Transmission Date: 20070319
  Serious: Yes (Other)
  Sender: FDA-Public Use
  Company Number: 230388

PATIENT
  Age: 13 Week
  Sex: Male

DRUGS (1)
  1. XOLAIR [Suspect]
     Indication: DRUG EXPOSURE DURING PREGNANCY
     Dosage: UNK, UNK, UNK

REACTIONS (6)
  - APGAR SCORE LOW [None]
  - DRUG EXPOSURE DURING PREGNANCY [None]
  - PNEUMONIA [None]
  - PREMATURE BABY [None]
  - TWIN PREGNANCY [None]
  - UNEVALUABLE EVENT [None]
